FAERS Safety Report 24280667 (Version 4)
Quarter: 2025Q1

REPORT INFORMATION
  Report Type: Spontaneous
  Country: US (occurrence: None)
  Receive Date: 20240904
  Receipt Date: 20250318
  Transmission Date: 20250408
  Serious: Yes (Hospitalization, Other)
  Sender: MDD OPERATIONS
  Company Number: US-MDD US Operations-MDD202408-003115

PATIENT
  Age: 63 Year
  Sex: Female
  Weight: 90.71 kg

DRUGS (11)
  1. APOKYN [Suspect]
     Active Substance: APOMORPHINE HYDROCHLORIDE
     Indication: Parkinson^s disease
     Dosage: 3 ML CARTRIDGE 1 EA CART
     Route: 058
     Dates: start: 202102
  2. BUPROPION [Concomitant]
     Active Substance: BUPROPION
  3. PROPRANOLOL HYDROCHLORIDE [Concomitant]
     Active Substance: PROPRANOLOL HYDROCHLORIDE
  4. DONEPEZIL HYDROCHLORIDE [Concomitant]
     Active Substance: DONEPEZIL HYDROCHLORIDE
  5. SEROQUEL [Concomitant]
     Active Substance: QUETIAPINE FUMARATE
  6. CLONAZEPAM [Concomitant]
     Active Substance: CLONAZEPAM
  7. RISPERIDONE [Concomitant]
     Active Substance: RISPERIDONE
  8. AMANTADINE [Concomitant]
     Active Substance: AMANTADINE
  9. NEUPRO [Concomitant]
     Active Substance: ROTIGOTINE
  10. NAMENDA [Concomitant]
     Active Substance: MEMANTINE HYDROCHLORIDE
  11. SINEMET [Concomitant]
     Active Substance: CARBIDOPA\LEVODOPA

REACTIONS (6)
  - Seizure [Unknown]
  - Renal impairment [Unknown]
  - Vision blurred [Unknown]
  - Cataract [Unknown]
  - Device breakage [Unknown]
  - Therapy cessation [Unknown]

NARRATIVE: CASE EVENT DATE: 20241117
